FAERS Safety Report 4422310-4 (Version None)
Quarter: 2004Q3

REPORT INFORMATION
  Report Type: 
  Country: None (occurrence: None)
  Receive Date: 20040810
  Receipt Date: 20040804
  Transmission Date: 20050211
  Serious: Yes (Hospitalization)
  Sender: FDA-Public Use
  Company Number: US-GLAXOSMITHKLINE-A0520977A

PATIENT
  Age: 34 Year
  Sex: Female

DRUGS (4)
  1. WELLBUTRIN [Suspect]
     Indication: DEPRESSION
     Dosage: 450MG PER DAY
     Route: 048
     Dates: end: 20040617
  2. DOXEPIN HCL [Concomitant]
  3. CLONAZEPAM [Concomitant]
  4. CHLORAL HYDRATE [Concomitant]

REACTIONS (4)
  - ALOPECIA [None]
  - CONVULSION [None]
  - LIVER DISORDER [None]
  - MIGRAINE [None]
